FAERS Safety Report 12132485 (Version 2)
Quarter: 2017Q4

REPORT INFORMATION
  Report Type: Report from Study
  Country: BR (occurrence: BR)
  Receive Date: 20160301
  Receipt Date: 20171207
  Transmission Date: 20180320
  Serious: Yes (Hospitalization, Other)
  Sender: FDA-Public Use
  Company Number: BR-ROCHE-1452913

PATIENT
  Age: 71 Year
  Sex: Female
  Weight: 56 kg

DRUGS (16)
  1. GLUCOVANCE [Concomitant]
     Active Substance: GLYBURIDE\METFORMIN HYDROCHLORIDE
     Indication: DIABETES MELLITUS
  2. MABTHERA [Suspect]
     Active Substance: RITUXIMAB
     Indication: RHEUMATOID ARTHRITIS
     Dosage: RECENT DOSE ON  16/SEP/2015
     Route: 042
     Dates: start: 20140814
  3. METHOTREXATE. [Concomitant]
     Active Substance: METHOTREXATE
  4. NIMESULIDE [Concomitant]
     Active Substance: NIMESULIDE
     Route: 065
  5. ALENDRONATE [Concomitant]
     Active Substance: ALENDRONATE SODIUM
  6. GLIFAGE [Concomitant]
     Active Substance: METFORMIN HYDROCHLORIDE
  7. ATENOLOL. [Concomitant]
     Active Substance: ATENOLOL
     Indication: BLOOD PRESSURE INCREASED
     Route: 065
  8. LOSARTAN. [Concomitant]
     Active Substance: LOSARTAN
     Route: 065
  9. SOLU-MEDROL [Suspect]
     Active Substance: METHYLPREDNISOLONE SODIUM SUCCINATE
     Indication: PRODUCT USED FOR UNKNOWN INDICATION
     Route: 065
  10. PREDSIM [Suspect]
     Active Substance: PREDNISOLONE
     Indication: PRODUCT USED FOR UNKNOWN INDICATION
     Route: 065
  11. SIMVASTATIN. [Concomitant]
     Active Substance: SIMVASTATIN
     Indication: BLOOD CHOLESTEROL INCREASED
  12. MABTHERA [Suspect]
     Active Substance: RITUXIMAB
     Dosage: DATE OF LATEST INFUSION: 16/MAY/2017
     Route: 042
     Dates: start: 20140418
  13. ASPIRIN. [Concomitant]
     Active Substance: ASPIRIN
     Dosage: AT LUNCH
     Route: 065
  14. ATENOLOL. [Concomitant]
     Active Substance: ATENOLOL
     Route: 065
  15. TRAMAL [Concomitant]
     Active Substance: TRAMADOL
  16. TECNOMET [Concomitant]
     Active Substance: METHOTREXATE
     Route: 065

REACTIONS (12)
  - Hypoaesthesia [Not Recovered/Not Resolved]
  - Pain [Not Recovered/Not Resolved]
  - Dysuria [Recovering/Resolving]
  - Drug ineffective [Unknown]
  - Urinary tract infection [Recovering/Resolving]
  - Joint swelling [Recovered/Resolved]
  - Arterial disorder [Unknown]
  - Arthralgia [Not Recovered/Not Resolved]
  - Blood pressure increased [Recovering/Resolving]
  - Dry eye [Not Recovered/Not Resolved]
  - Erythema [Unknown]
  - Pain [Recovered/Resolved]

NARRATIVE: CASE EVENT DATE: 20140819
